FAERS Safety Report 21902888 (Version 1)
Quarter: 2023Q1

REPORT INFORMATION
  Report Type: Spontaneous
  Country: US (occurrence: None)
  Receive Date: 20230123
  Receipt Date: 20230123
  Transmission Date: 20230418
  Serious: No
  Sender: FDA-Public Use
  Company Number: None

PATIENT
  Sex: Female

DRUGS (1)
  1. KYNMOBI [Suspect]
     Active Substance: APOMORPHINE HYDROCHLORIDE
     Indication: Parkinson^s disease
     Dosage: OTHER FREQUENCY : 5 TIMES DAILY;?
     Route: 060
     Dates: start: 202110, end: 20230111

REACTIONS (4)
  - Withdrawal syndrome [None]
  - Suicidal ideation [None]
  - Insurance issue [None]
  - Economic problem [None]
